FAERS Safety Report 7865965-4 (Version None)
Quarter: 2011Q4

REPORT INFORMATION
  Report Type: 
  Country: None (occurrence: None)
  Receive Date: 20111028
  Receipt Date: 20110329
  Transmission Date: 20120403
  Serious: No
  Sender: FDA-Public Use
  Company Number: US-GLAXOSMITHKLINE-A0920458A

PATIENT
  Age: 67 Year
  Sex: Male

DRUGS (5)
  1. LOVAZA [Concomitant]
  2. FOLIC ACID [Concomitant]
  3. PROAIR HFA [Concomitant]
  4. ADVAIR DISKUS 100/50 [Suspect]
     Indication: CHRONIC OBSTRUCTIVE PULMONARY DISEASE
     Dosage: 1PUFF TWICE PER DAY
     Route: 055
     Dates: start: 20110314
  5. ASPIRIN [Concomitant]

REACTIONS (6)
  - MYALGIA [None]
  - CHEST PAIN [None]
  - JOINT STIFFNESS [None]
  - INSOMNIA [None]
  - ILL-DEFINED DISORDER [None]
  - RESPIRATORY TRACT INFECTION [None]
